FAERS Safety Report 7644919-7 (Version None)
Quarter: 2011Q3

REPORT INFORMATION
  Report Type: 
  Country: None (occurrence: None)
  Receive Date: 20110729
  Receipt Date: 20110712
  Transmission Date: 20111222
  Serious: Yes (Hospitalization)
  Sender: FDA-Public Use
  Company Number: US-GLAXOSMITHKLINE-A0748633A

PATIENT
  Age: 68 Year
  Sex: Female
  Weight: 93.2 kg

DRUGS (7)
  1. ZOLOFT [Concomitant]
  2. GLIPIZIDE [Concomitant]
  3. AVANDIA [Suspect]
     Indication: DIABETES MELLITUS
     Dosage: 8MG PER DAY
     Route: 048
     Dates: start: 20000101, end: 20061201
  4. TRAZODONE HCL [Concomitant]
  5. LORAZEPAM [Concomitant]
  6. GABITRIL [Concomitant]
  7. OXYBUTYNIN [Concomitant]

REACTIONS (3)
  - ACUTE CORONARY SYNDROME [None]
  - CARDIAC FAILURE CONGESTIVE [None]
  - HEART INJURY [None]
